FAERS Safety Report 6679995-1 (Version None)
Quarter: 2010Q2

REPORT INFORMATION
  Report Type: 
  Country: None (occurrence: None)
  Receive Date: 20100413
  Receipt Date: 20100329
  Transmission Date: 20101027
  Serious: Yes (Death, Life-Threatening, Hospitalization, Other)
  Sender: FDA-Public Use
  Company Number: FI-CEPHALON-2010002093

PATIENT
  Sex: Female

DRUGS (15)
  1. TREANDA [Suspect]
     Indication: LYMPHOMA
     Dates: start: 20091027, end: 20091118
  2. MABTHERA [Suspect]
     Dates: start: 20090813, end: 20091118
  3. PROTAPHANE [Concomitant]
  4. FURESIS [Concomitant]
  5. THYROXIN [Concomitant]
  6. MAREVAN [Concomitant]
  7. KALEORID [Concomitant]
  8. PREDNISOLON [Concomitant]
  9. COZAAR [Concomitant]
  10. SPIRESIS [Concomitant]
  11. ISMOX [Concomitant]
  12. DIGOXIN [Concomitant]
  13. ZOLT [Concomitant]
  14. IMOVANE [Concomitant]
  15. SERTRALIN [Concomitant]

REACTIONS (5)
  - CYTOMEGALOVIRUS INFECTION [None]
  - DEATH [None]
  - DYSPNOEA [None]
  - ENTEROBACTER SEPSIS [None]
  - GENERAL PHYSICAL HEALTH DETERIORATION [None]
